FAERS Safety Report 12709502 (Version 1)
Quarter: 2016Q3

REPORT INFORMATION
  Report Type: Spontaneous
  Country: DE (occurrence: DE)
  Receive Date: 20160902
  Receipt Date: 20160902
  Transmission Date: 20161109
  Serious: Yes (Other)
  Sender: FDA-Public Use
  Company Number: DE-BIOVITRUM-2016DE0639

PATIENT
  Sex: Female
  Weight: 81 kg

DRUGS (1)
  1. KINERET [Suspect]
     Active Substance: ANAKINRA
     Indication: URTICARIAL VASCULITIS
     Route: 058
     Dates: start: 20151211

REACTIONS (2)
  - Drug ineffective for unapproved indication [Unknown]
  - Injection site plaque [Unknown]
